FAERS Safety Report 12890017 (Version 1)
Quarter: 2016Q4

REPORT INFORMATION
  Report Type: Spontaneous
  Country: GB (occurrence: GB)
  Receive Date: 20161027
  Receipt Date: 20161027
  Transmission Date: 20170207
  Serious: Yes (Other)
  Sender: FDA-Public Use
  Company Number: GB-TEVA-706438ACC

PATIENT
  Age: 62 Year
  Sex: Male
  Weight: 76 kg

DRUGS (3)
  1. FLUTICASONE [Concomitant]
     Active Substance: FLUTICASONE\FLUTICASONE PROPIONATE
  2. CETIRIZINE [Concomitant]
     Active Substance: CETIRIZINE HYDROCHLORIDE
  3. ATORVASTATIN [Suspect]
     Active Substance: ATORVASTATIN
     Indication: PROPHYLAXIS
     Dosage: 20 MILLIGRAM DAILY; AT NIGHT
     Route: 048
     Dates: start: 201409, end: 20160819

REACTIONS (9)
  - Fatigue [Recovering/Resolving]
  - Muscular weakness [Unknown]
  - Umbilical hernia [Unknown]
  - Musculoskeletal stiffness [Recovering/Resolving]
  - Myositis [Recovering/Resolving]
  - Myalgia [Unknown]
  - Muscle spasms [Unknown]
  - Condition aggravated [Unknown]
  - Inguinal hernia [Unknown]

NARRATIVE: CASE EVENT DATE: 201509
